FAERS Safety Report 4896395-5 (Version None)
Quarter: 2006Q1

REPORT INFORMATION
  Report Type: 
  Country: None (occurrence: None)
  Receive Date: 20060131
  Receipt Date: 20050830
  Transmission Date: 20060701
  Serious: Yes (Hospitalization)
  Sender: FDA-Public Use
  Company Number: US-BRISTOL-MYERS SQUIBB COMPANY-13094933

PATIENT
  Age: 63 Year
  Sex: Male

DRUGS (8)
  1. CETUXIMAB [Suspect]
     Indication: NON-SMALL CELL LUNG CANCER
     Dosage: PER PROTOCOL-WEEKLY. THERAPY INITIATED 23-MAY.
     Route: 042
     Dates: start: 20050822, end: 20050822
  2. CARBOPLATIN [Suspect]
     Indication: NON-SMALL CELL LUNG CANCER
     Dosage: PER PROTOCOL GIVEN EVERY 3 WEEKS.
     Route: 042
     Dates: start: 20050816, end: 20050816
  3. TAXOTERE [Suspect]
     Indication: NON-SMALL CELL LUNG CANCER
     Dosage: PER PROTOCOL GIVEN EVERY 3 WEEKS.
     Route: 042
     Dates: start: 20050816, end: 20050816
  4. DURAGESIC-100 [Concomitant]
     Dates: start: 20050519
  5. OXYCODONE [Concomitant]
     Dates: start: 20050620
  6. MAXIPIME [Concomitant]
  7. VANCOMYCIN [Concomitant]
  8. PROTONIX [Concomitant]

REACTIONS (6)
  - DEHYDRATION [None]
  - FEBRILE NEUTROPENIA [None]
  - HYPOKALAEMIA [None]
  - HYPOMAGNESAEMIA [None]
  - HYPONATRAEMIA [None]
  - ILEUS [None]
